FAERS Safety Report 8619963-3 (Version None)
Quarter: 2012Q3

REPORT INFORMATION
  Report Type: 
  Country: None (occurrence: None)
  Receive Date: 20120824
  Receipt Date: 20120815
  Transmission Date: 20120928
  Serious: Yes (Hospitalization, Other)
  Sender: FDA-Public Use
  Company Number: US-ELI_LILLY_AND_COMPANY-US201208005032

PATIENT
  Age: 56 Year
  Sex: Female

DRUGS (5)
  1. CYMBALTA [Suspect]
     Indication: MUSCULOSKELETAL PAIN
     Dosage: 30 MG, UNK
     Dates: start: 20120601
  2. DILAUDID [Concomitant]
     Indication: PAIN
  3. CYMBALTA [Suspect]
     Dosage: 60 MG, UNK
     Dates: end: 20120701
  4. FENTANYL [Concomitant]
     Indication: PAIN
  5. SANTYL [Concomitant]

REACTIONS (9)
  - SCAB [None]
  - SUICIDAL IDEATION [None]
  - RASH ERYTHEMATOUS [None]
  - VASCULITIS [None]
  - WOUND NECROSIS [None]
  - CRYING [None]
  - BLISTER [None]
  - PAIN [None]
  - BURNING SENSATION [None]
